FAERS Safety Report 4807243-3 (Version None)
Quarter: 2005Q4

REPORT INFORMATION
  Report Type: 
  Country: None (occurrence: None)
  Receive Date: 20051020
  Receipt Date: 20051020
  Transmission Date: 20060501
  Serious: Yes (Hospitalization, Disabling)
  Sender: FDA-Public Use
  Company Number: None

PATIENT
  Age: 17 Year
  Sex: Female
  Weight: 63.5036 kg

DRUGS (1)
  1. PREDNISONE [Suspect]
     Indication: JUVENILE ARTHRITIS
     Dosage: 1000 MG 1 X 3 DAYS  INTRACAVER  : 60MG  A DAY
     Route: 017
     Dates: start: 20040507, end: 20040820

REACTIONS (1)
  - OSTEONECROSIS [None]
